FAERS Safety Report 6269449-9 (Version None)
Quarter: 2009Q3

REPORT INFORMATION
  Report Type: 
  Country: None (occurrence: None)
  Receive Date: 20090715
  Receipt Date: 20090709
  Transmission Date: 20100115
  Serious: Yes (Hospitalization)
  Sender: FDA-Public Use
  Company Number: US-EISAI INC.-E2080-00186-SPO-US

PATIENT
  Age: 10 Year
  Sex: Female

DRUGS (10)
  1. BANZEL [Suspect]
     Indication: STATUS EPILEPTICUS
     Route: 048
     Dates: start: 20090601, end: 20090601
  2. BANZEL [Suspect]
     Route: 048
     Dates: start: 20090601, end: 20090706
  3. TOPIRAMATE [Concomitant]
  4. DIVALPROEX SODIUM [Concomitant]
  5. BENZODIAZEPINE [Concomitant]
  6. DEPAKOTE [Concomitant]
  7. PROVIGIL [Concomitant]
  8. CONCERTA [Concomitant]
  9. ATIVAN [Concomitant]
  10. RITALIN [Concomitant]

REACTIONS (3)
  - CONVULSION [None]
  - ELECTROCARDIOGRAM QT SHORTENED [None]
  - SPEECH DISORDER [None]
